FAERS Safety Report 13412001 (Version 2)
Quarter: 2017Q4

REPORT INFORMATION
  Report Type: Spontaneous
  Country: US (occurrence: US)
  Receive Date: 20170406
  Receipt Date: 20171123
  Transmission Date: 20180320
  Serious: No
  Sender: FDA-Public Use
  Company Number: US-JNJFOC-20170316564

PATIENT
  Sex: Male

DRUGS (31)
  1. RISPERDAL [Suspect]
     Active Substance: RISPERIDONE
     Indication: DEPRESSION
     Route: 048
     Dates: start: 20061222
  2. RISPERIDONE. [Suspect]
     Active Substance: RISPERIDONE
     Indication: DRUG DEPENDENCE
     Route: 048
     Dates: start: 20110301, end: 20110818
  3. RISPERIDONE. [Suspect]
     Active Substance: RISPERIDONE
     Indication: ALCOHOL ABUSE
     Route: 048
     Dates: start: 20120518, end: 20130422
  4. RISPERIDONE. [Suspect]
     Active Substance: RISPERIDONE
     Indication: SCHIZOPHRENIA
     Route: 048
     Dates: start: 20110301, end: 20110818
  5. RISPERDAL [Suspect]
     Active Substance: RISPERIDONE
     Indication: ANXIETY
     Route: 048
     Dates: start: 20120918, end: 20121031
  6. RISPERDAL [Suspect]
     Active Substance: RISPERIDONE
     Indication: DRUG DEPENDENCE
     Route: 048
     Dates: start: 20061222
  7. RISPERDAL [Suspect]
     Active Substance: RISPERIDONE
     Indication: ANXIETY
     Route: 048
     Dates: start: 20061222
  8. RISPERIDONE. [Suspect]
     Active Substance: RISPERIDONE
     Indication: DEPRESSION
     Dosage: V1: VARYING DOSES OF 1 MG AND 3 MG.
     Route: 048
     Dates: start: 20061222, end: 20110301
  9. RISPERIDONE. [Suspect]
     Active Substance: RISPERIDONE
     Indication: SCHIZOPHRENIA
     Dosage: V1: VARYING DOSES OF 1 MG AND 3 MG.
     Route: 048
     Dates: start: 20061222, end: 20110301
  10. RISPERDAL [Suspect]
     Active Substance: RISPERIDONE
     Indication: DEPRESSION
     Route: 048
     Dates: start: 20120918, end: 20121031
  11. RISPERDAL [Suspect]
     Active Substance: RISPERIDONE
     Indication: SCHIZOPHRENIA
     Route: 048
     Dates: start: 20120918, end: 20121031
  12. RISPERIDONE. [Suspect]
     Active Substance: RISPERIDONE
     Indication: PRODUCT USED FOR UNKNOWN INDICATION
     Route: 048
  13. RISPERDAL [Suspect]
     Active Substance: RISPERIDONE
     Indication: SCHIZOPHRENIA
     Route: 048
     Dates: start: 20061222
  14. RISPERIDONE. [Suspect]
     Active Substance: RISPERIDONE
     Indication: ALCOHOL ABUSE
     Dosage: V1: VARYING DOSES OF 1 MG AND 3 MG.
     Route: 048
     Dates: start: 20061222, end: 20110301
  15. RISPERDAL [Suspect]
     Active Substance: RISPERIDONE
     Indication: DRUG DEPENDENCE
     Route: 048
     Dates: start: 20120918, end: 20121031
  16. RISPERDAL [Suspect]
     Active Substance: RISPERIDONE
     Indication: ALCOHOL ABUSE
     Dosage: V1: VARYING DOSES OF 0.5 MG, 1 MG, 3 MG 3.5 MG AND 4 MG
     Route: 048
     Dates: start: 20061226, end: 20130427
  17. RISPERIDONE. [Suspect]
     Active Substance: RISPERIDONE
     Indication: ANXIETY
     Route: 048
     Dates: start: 20110301, end: 20110818
  18. RISPERDAL [Suspect]
     Active Substance: RISPERIDONE
     Indication: ALCOHOL ABUSE
     Route: 048
     Dates: start: 20120918, end: 20121031
  19. RISPERDAL [Suspect]
     Active Substance: RISPERIDONE
     Indication: DRUG DEPENDENCE
     Dosage: V1: VARYING DOSES OF 0.5 MG, 1 MG, 3 MG 3.5 MG AND 4 MG
     Route: 048
     Dates: start: 20061226, end: 20130427
  20. RISPERDAL [Suspect]
     Active Substance: RISPERIDONE
     Indication: DEPRESSION
     Dosage: V1: VARYING DOSES OF 0.5 MG, 1 MG, 3 MG 3.5 MG AND 4 MG
     Route: 048
     Dates: start: 20061226, end: 20130427
  21. RISPERDAL [Suspect]
     Active Substance: RISPERIDONE
     Indication: ALCOHOL ABUSE
     Route: 048
     Dates: start: 20061222
  22. RISPERIDONE. [Suspect]
     Active Substance: RISPERIDONE
     Indication: DRUG DEPENDENCE
     Route: 048
     Dates: start: 20120518, end: 20130422
  23. RISPERIDONE. [Suspect]
     Active Substance: RISPERIDONE
     Indication: DEPRESSION
     Route: 048
     Dates: start: 20120518, end: 20130422
  24. RISPERIDONE. [Suspect]
     Active Substance: RISPERIDONE
     Indication: DEPRESSION
     Route: 048
     Dates: start: 20110301, end: 20110818
  25. RISPERIDONE. [Suspect]
     Active Substance: RISPERIDONE
     Indication: ANXIETY
     Route: 048
     Dates: start: 20120518, end: 20130422
  26. RISPERIDONE. [Suspect]
     Active Substance: RISPERIDONE
     Indication: ALCOHOL ABUSE
     Route: 048
     Dates: start: 20110301, end: 20110818
  27. RISPERDAL [Suspect]
     Active Substance: RISPERIDONE
     Indication: ANXIETY
     Dosage: V1: VARYING DOSES OF 0.5 MG, 1 MG, 3 MG 3.5 MG AND 4 MG
     Route: 048
     Dates: start: 20061226, end: 20130427
  28. RISPERDAL [Suspect]
     Active Substance: RISPERIDONE
     Indication: SCHIZOPHRENIA
     Dosage: V1: VARYING DOSES OF 0.5 MG, 1 MG, 3 MG 3.5 MG AND 4 MG
     Route: 048
     Dates: start: 20061226, end: 20130427
  29. RISPERIDONE. [Suspect]
     Active Substance: RISPERIDONE
     Indication: DRUG DEPENDENCE
     Dosage: V1: VARYING DOSES OF 1 MG AND 3 MG.
     Route: 048
     Dates: start: 20061222, end: 20110301
  30. RISPERIDONE. [Suspect]
     Active Substance: RISPERIDONE
     Indication: ANXIETY
     Dosage: V1: VARYING DOSES OF 1 MG AND 3 MG.
     Route: 048
     Dates: start: 20061222, end: 20110301
  31. RISPERIDONE. [Suspect]
     Active Substance: RISPERIDONE
     Indication: SCHIZOPHRENIA
     Route: 048
     Dates: start: 20120518, end: 20130422

REACTIONS (2)
  - Gynaecomastia [Unknown]
  - Emotional disorder [Unknown]
